FAERS Safety Report 13993777 (Version 1)
Quarter: 2017Q3

REPORT INFORMATION
  Report Type: Not Available
  Country: US (occurrence: US)
  Receive Date: 20170920
  Receipt Date: 20170920
  Transmission Date: 20171128
  Serious: Yes (Hospitalization)
  Sender: FDA-Public Use
  Company Number: US-KRAMERLABS-2017-US-010467

PATIENT
  Age: 72 Year
  Sex: Female
  Weight: 75.75 kg

DRUGS (6)
  1. FUNGI NAIL TOE AND FOOT [Suspect]
     Active Substance: UNDECYLENIC ACID
     Dosage: 2 DROPS ON THUMB NAIL ONCE DAILY IN MORNING
     Route: 061
     Dates: start: 20170608, end: 20170609
  2. ATORVASTATIN [Concomitant]
     Active Substance: ATORVASTATIN
  3. METFORMIN [Concomitant]
     Active Substance: METFORMIN HYDROCHLORIDE
  4. LISINOPRIL. [Concomitant]
     Active Substance: LISINOPRIL
  5. ATENOLOL. [Concomitant]
     Active Substance: ATENOLOL
  6. GLIPIZIDE. [Concomitant]
     Active Substance: GLIPIZIDE

REACTIONS (6)
  - Burning sensation [Recovered/Resolved]
  - Nail dystrophy [Not Recovered/Not Resolved]
  - Abscess [Recovered/Resolved]
  - Nail discolouration [Not Recovered/Not Resolved]
  - Swelling [Recovered/Resolved]
  - Erythema [Recovered/Resolved]

NARRATIVE: CASE EVENT DATE: 201706
